FAERS Safety Report 6317545-X (Version None)
Quarter: 2009Q3

REPORT INFORMATION
  Report Type: 
  Country: None (occurrence: None)
  Receive Date: 20090820
  Receipt Date: 20090820
  Transmission Date: 20100115
  Serious: Yes (Hospitalization)
  Sender: FDA-Public Use
  Company Number: None

PATIENT
  Age: 76 Year
  Sex: Male
  Weight: 94.7 kg

DRUGS (3)
  1. CETUXIMAB [Suspect]
     Dosage: 800MG X1 IV
     Route: 042
     Dates: start: 20090811
  2. TAXOL [Suspect]
     Dosage: 200MG X1 IV
     Route: 042
     Dates: start: 20090811
  3. CARBOPLATIN [Suspect]
     Dates: start: 20090811

REACTIONS (1)
  - VITAMIN B12 DECREASED [None]
